FAERS Safety Report 5046506-6 (Version None)
Quarter: 2006Q2

REPORT INFORMATION
  Report Type: 
  Country: None (occurrence: None)
  Receive Date: 20060629
  Receipt Date: 20060616
  Transmission Date: 20061013
  Serious: Yes (Hospitalization, Disabling, Other)
  Sender: FDA-Public Use
  Company Number: 2006077719

PATIENT
  Sex: Male
  Weight: 109.7705 kg

DRUGS (5)
  1. NORVASC [Suspect]
     Indication: HYPERTENSION
     Dosage: 5 MG (5 MG, FREQUENCY:  DAILY INTERVAL:  EVERY DAY)
  2. CARDURA [Suspect]
     Indication: PROSTATIC DISORDER
  3. LOTREL [Suspect]
     Indication: HYPERTENSION
  4. LISINOPRIL [Suspect]
     Indication: HYPERTENSION
     Dates: start: 20060101
  5. LIPITOR [Concomitant]

REACTIONS (6)
  - BLOOD PRESSURE INADEQUATELY CONTROLLED [None]
  - DIZZINESS [None]
  - ERECTILE DYSFUNCTION [None]
  - FALL [None]
  - LOSS OF CONSCIOUSNESS [None]
  - MALAISE [None]
